FAERS Safety Report 4319395-2 (Version None)
Quarter: 2004Q1

REPORT INFORMATION
  Report Type: 
  Country: None (occurrence: None)
  Receive Date: 20040316
  Receipt Date: 20040226
  Transmission Date: 20041129
  Serious: No
  Sender: FDA-Public Use
  Company Number: B0325438A

PATIENT
  Age: 68 Year
  Sex: Male

DRUGS (2)
  1. LEUKERAN [Suspect]
     Indication: CHRONIC LYMPHOCYTIC LEUKAEMIA
     Dosage: 10 MG/M2 /PER DAY/ ORAL
     Route: 048
  2. THIETHYLPERAZINE [Concomitant]

REACTIONS (2)
  - DEPRESSION [None]
  - NEUROTOXICITY [None]
